FAERS Safety Report 5551139-9 (Version None)
Quarter: 2007Q4

REPORT INFORMATION
  Report Type: 
  Country: None (occurrence: None)
  Receive Date: 20071212
  Receipt Date: 20071205
  Transmission Date: 20080405
  Serious: Yes (Life-Threatening)
  Sender: FDA-Public Use
  Company Number: B0499259A

PATIENT
  Age: 59 Year
  Sex: Male

DRUGS (3)
  1. AUGMENTIN [Suspect]
     Indication: TOOTHACHE
     Route: 048
     Dates: start: 20070201, end: 20070201
  2. ENANTYUM [Suspect]
     Indication: TOOTHACHE
     Route: 048
     Dates: start: 20070201, end: 20070201
  3. AMOXICILLIN [Suspect]
     Indication: DRUG USE FOR UNKNOWN INDICATION
     Route: 065
     Dates: start: 20051001

REACTIONS (10)
  - ANAPHYLACTIC SHOCK [None]
  - ERYTHEMA [None]
  - GENERALISED ERYTHEMA [None]
  - HYPOTENSION [None]
  - HYPOTONIA [None]
  - LOSS OF CONSCIOUSNESS [None]
  - PRURITUS [None]
  - PRURITUS GENERALISED [None]
  - SYNCOPE VASOVAGAL [None]
  - VOMITING [None]
